FAERS Safety Report 25839186 (Version 1)
Quarter: 2025Q3

REPORT INFORMATION
  Report Type: Report from Study
  Country: CA (occurrence: CA)
  Receive Date: 20250924
  Receipt Date: 20250924
  Transmission Date: 20251021
  Serious: Yes (Hospitalization, Other)
  Sender: CELLTRION
  Company Number: CA-CELLTRION INC.-2025CA007012

PATIENT

DRUGS (4)
  1. ADALIMUMAB-AATY [Suspect]
     Active Substance: ADALIMUMAB-AATY
     Indication: Psoriatic arthropathy
     Route: 058
     Dates: start: 20250213
  2. ADALIMUMAB-AATY [Suspect]
     Active Substance: ADALIMUMAB-AATY
  3. MEASLES-MUMPS-RUBELLA VIRUS VACCINE [Concomitant]
     Active Substance: MEASLES-MUMPS-RUBELLA VIRUS VACCINE
     Dates: start: 20250328
  4. MEASLES-MUMPS-RUBELLA VIRUS VACCINE, LIVE [Concomitant]
     Active Substance: MEASLES-MUMPS-RUBELLA VIRUS VACCINE, LIVE

REACTIONS (8)
  - Psoriatic arthropathy [Unknown]
  - Myocardial infarction [Unknown]
  - Hospitalisation [Unknown]
  - Device malfunction [Unknown]
  - Labelled drug-drug interaction issue [Unknown]
  - Product dose omission issue [Unknown]
  - Intentional dose omission [Unknown]
  - Therapy interrupted [Unknown]

NARRATIVE: CASE EVENT DATE: 20250328
